FAERS Safety Report 4732847-6 (Version None)
Quarter: 2005Q3

REPORT INFORMATION
  Report Type: 
  Country: None (occurrence: None)
  Receive Date: 20050801
  Receipt Date: 20050603
  Transmission Date: 20060218
  Serious: Yes (Other)
  Sender: FDA-Public Use
  Company Number: 2005102706

PATIENT
  Age: 56 Year
  Sex: Female

DRUGS (5)
  1. ATARAX [Suspect]
     Indication: PRURITUS
     Dosage: 25 MG (IN THE EVENING), ORAL
     Route: 048
  2. CETIRIZINE HCL [Suspect]
     Indication: PRURITUS
     Dosage: ORAL
     Route: 048
  3. ART 50 (DIACEREIN) [Concomitant]
  4. ABUFENE (BETA-ALANINE) [Concomitant]
  5. FLUCONAZOLE [Concomitant]

REACTIONS (4)
  - ANGIONEUROTIC OEDEMA [None]
  - DISCOMFORT [None]
  - RESPIRATORY DISORDER [None]
  - URTICARIA GENERALISED [None]
